FAERS Safety Report 13879893 (Version 1)
Quarter: 2017Q3

REPORT INFORMATION
  Report Type: Spontaneous
  Country: GB (occurrence: GB)
  Receive Date: 20170818
  Receipt Date: 20170818
  Transmission Date: 20171127
  Serious: Yes (Disabling, Congenital Anomaly, Other)
  Sender: FDA-Public Use
  Company Number: GB-TORRENT-00015507

PATIENT
  Sex: Male
  Weight: 3 kg

DRUGS (7)
  1. QUETIAPINE FUMARATE. [Suspect]
     Active Substance: QUETIAPINE FUMARATE
  2. SALBUTAMOL MICRONISED [Concomitant]
  3. FOLIC ACID. [Concomitant]
     Active Substance: FOLIC ACID
  4. VITAMIN SUPPLEMENT [Concomitant]
     Active Substance: VITAMINS
  5. BECLOMETHASONE [Concomitant]
     Active Substance: BECLOMETHASONE
  6. LITHIUM CARBONATE. [Suspect]
     Active Substance: LITHIUM CARBONATE
  7. ANTIBIOTICS [Concomitant]
     Active Substance: UNSPECIFIED INGREDIENT

REACTIONS (2)
  - Microphthalmos [Not Recovered/Not Resolved]
  - Foetal exposure during pregnancy [Unknown]

NARRATIVE: CASE EVENT DATE: 20160613
